FAERS Safety Report 11213354 (Version 1)
Quarter: 2015Q2

REPORT INFORMATION
  Report Type: Spontaneous
  Country: US (occurrence: US)
  Receive Date: 20150623
  Receipt Date: 20150623
  Transmission Date: 20150821
  Serious: Yes (Other)
  Sender: FDA-Public Use
  Company Number: PHHY2015US073020

PATIENT
  Age: 18 Year
  Sex: Male

DRUGS (1)
  1. OLANZAPINE. [Suspect]
     Active Substance: OLANZAPINE
     Indication: PRODUCT USED FOR UNKNOWN INDICATION
     Route: 065

REACTIONS (6)
  - Dry skin [Recovering/Resolving]
  - Overdose [Recovering/Resolving]
  - Coma [Recovering/Resolving]
  - Gastrointestinal sounds abnormal [Recovering/Resolving]
  - Urinary retention [Recovering/Resolving]
  - Miosis [Recovering/Resolving]
